FAERS Safety Report 8598113-6 (Version None)
Quarter: 2012Q3

REPORT INFORMATION
  Report Type: 
  Country: None (occurrence: None)
  Receive Date: 20120816
  Receipt Date: 20120809
  Transmission Date: 20120928
  Serious: Yes (Hospitalization)
  Sender: FDA-Public Use
  Company Number: US-PFIZER INC-2012195521

PATIENT
  Age: 34 Year
  Sex: Male

DRUGS (5)
  1. ISOPRINOSINE [Concomitant]
     Dosage: UNK
  2. ACYCLOVIR [Concomitant]
     Dosage: UNK
  3. SULFAMETHOXAZOLE AND TRIMETHOPRIM [Suspect]
     Indication: PNEUMOCYSTIS JIROVECI PNEUMONIA
     Dosage: TMP 20 MG/KG/D, SMX 100 MG/KG/D
     Route: 042
  4. SULFAMETHOXAZOLE AND TRIMETHOPRIM [Suspect]
     Dosage: 1 DF, 2X/DAY
     Route: 048
  5. NYSTATIN [Concomitant]
     Dosage: UNK

REACTIONS (15)
  - LIVER FUNCTION TEST ABNORMAL [None]
  - NEUTROPENIA [None]
  - DERMATITIS EXFOLIATIVE [None]
  - CHILLS [None]
  - PYREXIA [None]
  - CONJUNCTIVAL HYPERAEMIA [None]
  - VISION BLURRED [None]
  - RHABDOMYOLYSIS [None]
  - HYPOXIA [None]
  - NAUSEA [None]
  - RASH ERYTHEMATOUS [None]
  - PULMONARY OEDEMA [None]
  - ANAPHYLACTIC REACTION [None]
  - HYPOTENSION [None]
  - PRURITUS [None]
